FAERS Safety Report 7457536-9 (Version None)
Quarter: 2011Q2

REPORT INFORMATION
  Report Type: 
  Country: None (occurrence: None)
  Receive Date: 20110426
  Receipt Date: 20110404
  Transmission Date: 20111010
  Serious: Yes (Other)
  Sender: FDA-Public Use
  Company Number: 2026023-2011-0001

PATIENT
  Sex: Female

DRUGS (1)
  1. STYE EYE RELIEF, CONIUM MACULATUM 6X, GRAPHITES 12X SULFUR 12X, SIMILA [Suspect]
     Indication: HORDEOLUM
     Dosage: 2 DRPS 3X/DAY, 046
     Dates: start: 20110402

REACTIONS (4)
  - BLISTER [None]
  - HYPOAESTHESIA FACIAL [None]
  - REACTION TO DRUG EXCIPIENTS [None]
  - SWELLING FACE [None]
